FAERS Safety Report 26085329 (Version 2)
Quarter: 2025Q4

REPORT INFORMATION
  Report Type: Spontaneous
  Country: US (occurrence: US)
  Receive Date: 20251125
  Receipt Date: 20251212
  Transmission Date: 20260118
  Serious: No
  Sender: ELI LILLY AND COMPANY
  Company Number: US-ELI_LILLY_AND_COMPANY-US202511022978

PATIENT

DRUGS (2)
  1. KISUNLA [Suspect]
     Active Substance: DONANEMAB-AZBT
     Indication: Product used for unknown indication
     Dosage: UNK, UNKNOWN(1ST INFUSION)
     Route: 065
     Dates: start: 20250505
  2. KISUNLA [Suspect]
     Active Substance: DONANEMAB-AZBT
     Dosage: UNK, UNKNOWN
     Route: 065
     Dates: start: 202509, end: 20251022

REACTIONS (8)
  - Mental status changes [Not Recovered/Not Resolved]
  - Delirium [Unknown]
  - Confusional state [Not Recovered/Not Resolved]
  - Delusion [Unknown]
  - Positron emission tomogram abnormal [Unknown]
  - Cognitive disorder [Not Recovered/Not Resolved]
  - Dyspnoea [Unknown]
  - Headache [Unknown]

NARRATIVE: CASE EVENT DATE: 20250901
